FAERS Safety Report 15595562 (Version 7)
Quarter: 2021Q1

REPORT INFORMATION
  Report Type: Report from Study
  Country: US (occurrence: US)
  Receive Date: 20181107
  Receipt Date: 20210212
  Transmission Date: 20210419
  Serious: Yes (Death, Other)
  Sender: FDA-Public Use
  Company Number: US-ASTELLAS-2018US047320

PATIENT
  Age: 74 Year
  Sex: Male

DRUGS (3)
  1. ENZALUTAMIDE [Suspect]
     Active Substance: ENZALUTAMIDE
     Indication: HORMONE-REFRACTORY PROSTATE CANCER
     Route: 048
     Dates: start: 20181003
  2. ENZALUTAMIDE [Suspect]
     Active Substance: ENZALUTAMIDE
     Route: 048
  3. GLYBURIDE. [Concomitant]
     Active Substance: GLYBURIDE
     Indication: PRODUCT USED FOR UNKNOWN INDICATION
     Dosage: UNK UNK, UNKNOWN FREQ.
     Route: 065

REACTIONS (10)
  - Oncologic complication [Fatal]
  - Cerebrovascular accident [Unknown]
  - Amnesia [Unknown]
  - Cerebral thrombosis [Unknown]
  - Product availability issue [Unknown]
  - Dementia [Unknown]
  - Fall [Unknown]
  - Blood glucose abnormal [Unknown]
  - Fatigue [Not Recovered/Not Resolved]
  - Haemorrhagic stroke [Fatal]

NARRATIVE: CASE EVENT DATE: 201810
